FAERS Safety Report 7360718-8 (Version None)
Quarter: 2011Q1

REPORT INFORMATION
  Report Type: 
  Country: None (occurrence: None)
  Receive Date: 20110318
  Receipt Date: 20110306
  Transmission Date: 20110831
  Serious: Yes (Other)
  Sender: FDA-Public Use
  Company Number: IL-CELGENEUS-082-50794-11030668

PATIENT
  Age: 61 Year
  Sex: Male

DRUGS (2)
  1. VIDAZA [Suspect]
     Dosage: 100MG FOR 7 DAYS WITH INTERMISSION OF 2 DAYS AT FRIDAY AND SATURDAY
     Route: 065
  2. NEUPOGEN [Concomitant]
     Route: 065

REACTIONS (2)
  - DYSPHAGIA [None]
  - THROAT IRRITATION [None]
